FAERS Safety Report 8222387-4 (Version None)
Quarter: 2012Q1

REPORT INFORMATION
  Report Type: 
  Country: None (occurrence: None)
  Receive Date: 20120312
  Receipt Date: 20120301
  Transmission Date: 20120608
  Serious: Yes (Hospitalization)
  Sender: FDA-Public Use
  Company Number: DSA_55114_2012

PATIENT
  Sex: Male

DRUGS (1)
  1. BUPROPION HCL [Suspect]
     Indication: PRODUCT USED FOR UNKNOWN INDICATION
     Dosage: (1500 MG 1X, NOT THE PRESCRIBED AMOUNT ORAL)
     Route: 048
     Dates: start: 20120211, end: 20120211

REACTIONS (5)
  - TOXICITY TO VARIOUS AGENTS [None]
  - DRUG ABUSE [None]
  - MALAISE [None]
  - DRY MOUTH [None]
  - SINUS TACHYCARDIA [None]
